FAERS Safety Report 8411841-8 (Version None)
Quarter: 2012Q2

REPORT INFORMATION
  Report Type: 
  Country: None (occurrence: None)
  Receive Date: 20120531
  Receipt Date: 20120531
  Transmission Date: 20120825
  Serious: Yes (Hospitalization)
  Sender: FDA-Public Use
  Company Number: None

PATIENT
  Age: 71 Year
  Sex: Male
  Weight: 152 kg

DRUGS (1)
  1. CLOPIDOGREL [Suspect]
     Indication: TRANSIENT ISCHAEMIC ATTACK
     Dosage: 1 TAB EVERY DAY PO
     Route: 048
     Dates: start: 20120411, end: 20120415

REACTIONS (7)
  - HYPERHIDROSIS [None]
  - DIZZINESS [None]
  - FAECES DISCOLOURED [None]
  - HAEMORRHAGE [None]
  - ASTHENIA [None]
  - HAEMOGLOBIN DECREASED [None]
  - GASTROINTESTINAL HAEMORRHAGE [None]
